FAERS Safety Report 6268315-2 (Version None)
Quarter: 2009Q3

REPORT INFORMATION
  Report Type: 
  Country: None (occurrence: None)
  Receive Date: 20090715
  Receipt Date: 20090708
  Transmission Date: 20100115
  Serious: Yes (Disabling)
  Sender: FDA-Public Use
  Company Number: JP-ALLERGAN-0909281US

PATIENT
  Age: 68 Year
  Sex: Male

DRUGS (12)
  1. BOTOX [Suspect]
     Indication: FACIAL SPASM
     Dosage: 10 UNITS, SINGLE
     Route: 030
     Dates: start: 20010827, end: 20010827
  2. BOTOX [Suspect]
     Dosage: 8.75 UNITS, SINGLE
     Route: 030
     Dates: start: 20011119, end: 20011119
  3. BOTOX [Suspect]
     Dosage: 17.5 UNITS, SINGLE
     Route: 030
     Dates: start: 20020325, end: 20020325
  4. BOTOX [Suspect]
     Dosage: 20 UNITS, SINGLE
     Route: 030
     Dates: start: 20020805, end: 20020805
  5. BOTOX [Suspect]
     Dosage: 22.5 UNITS, SINGLE
     Route: 030
     Dates: start: 20030120, end: 20030120
  6. BOTOX [Suspect]
     Dosage: 15 UNITS, SINGLE
     Route: 030
     Dates: start: 20030512, end: 20030512
  7. BOTOX [Suspect]
     Dosage: 20 UNITS, SINGLE
     Route: 030
     Dates: start: 20030929, end: 20030929
  8. BOTOX [Suspect]
     Dosage: 20 UNITS, SINGLE
     Route: 030
     Dates: start: 20040322, end: 20040322
  9. BOTOX [Suspect]
     Dosage: 10 UNITS, SINGLE
     Route: 030
     Dates: start: 20040809, end: 20040809
  10. BOTOX [Suspect]
     Dosage: 12.5 UNITS, SINGLE
     Route: 030
     Dates: start: 20050214, end: 20050214
  11. BOTOX [Suspect]
     Dosage: 15 UNITS, SINGLE
     Route: 030
     Dates: start: 20050726, end: 20050726
  12. DEPAS [Concomitant]
     Indication: FACIAL SPASM
     Dosage: 0.5 MG, UNK
     Route: 048
     Dates: start: 20011217, end: 20051019

REACTIONS (1)
  - FACIAL PALSY [None]
